FAERS Safety Report 9347296 (Version 2)
Quarter: 2014Q1

REPORT INFORMATION
  Report Type: Spontaneous
  Country: IT (occurrence: IT)
  Receive Date: 20130613
  Receipt Date: 20140311
  Transmission Date: 20141002
  Serious: Yes (Hospitalization)
  Sender: FDA-Public Use
  Company Number: IT-ACTAVIS-2013-10939

PATIENT
  Age: 57 Year
  Sex: Female

DRUGS (3)
  1. PARACETAMOL (UNKNOWN) [Suspect]
     Indication: PYREXIA
     Dosage: UNK
     Route: 065
     Dates: start: 20130507, end: 20130512
  2. AUGMENTIN GLAXOSMITHKLINE [Suspect]
     Indication: PYREXIA
     Dosage: 2 DF, DAILY
     Route: 048
  3. ROCEFIN [Suspect]
     Indication: PYREXIA
     Dosage: 1 DF, DAILY
     Route: 030
     Dates: start: 20130509, end: 20130512

REACTIONS (4)
  - Erythema [Not Recovered/Not Resolved]
  - Vomiting [Not Recovered/Not Resolved]
  - Diarrhoea [Not Recovered/Not Resolved]
  - Transaminases abnormal [Not Recovered/Not Resolved]
